FAERS Safety Report 10380923 (Version 1)
Quarter: 2014Q3

REPORT INFORMATION
  Report Type: Spontaneous
  Country: US (occurrence: None)
  Receive Date: 20140812
  Receipt Date: 20140812
  Transmission Date: 20150326
  Serious: No
  Sender: FDA-Public Use
  Company Number: None

PATIENT
  Age: 51 Year
  Sex: Female
  Weight: 84.82 kg

DRUGS (11)
  1. BUSPIRONE [Concomitant]
     Active Substance: BUSPIRONE HYDROCHLORIDE
  2. FLUOXETINE [Concomitant]
     Active Substance: FLUOXETINE\FLUOXETINE HYDROCHLORIDE
  3. ISOSORBIDE MONONITRATEE ER [Concomitant]
  4. ASPIRING [Concomitant]
     Active Substance: ASPIRIN
  5. NTG [Concomitant]
     Active Substance: NITROGLYCERIN
  6. ALBUTEROL INHALER [Concomitant]
     Active Substance: ALBUTEROL
  7. LEVOTHYROXINE [Concomitant]
     Active Substance: LEVOTHYROXINE
  8. PRASUGREL [Concomitant]
     Active Substance: PRASUGREL
  9. MICARDIS [Suspect]
     Active Substance: TELMISARTAN
     Indication: HYPERTENSION
     Dosage: 1/2 TABLET
     Route: 048
     Dates: start: 20140301, end: 20140811
  10. ASMANEX [Concomitant]
     Active Substance: MOMETASONE FUROATE
  11. SIMVASTATIN. [Concomitant]
     Active Substance: SIMVASTATIN

REACTIONS (1)
  - Chest pain [None]

NARRATIVE: CASE EVENT DATE: 20140811
